FAERS Safety Report 4516183-9 (Version None)
Quarter: 2004Q4

REPORT INFORMATION
  Report Type: 
  Country: None (occurrence: None)
  Receive Date: 20041202
  Receipt Date: 20041123
  Transmission Date: 20050328
  Serious: Yes (Death, Life-Threatening, Hospitalization)
  Sender: FDA-Public Use
  Company Number: FR-BRISTOL-MYERS SQUIBB COMPANY-12775961

PATIENT
  Age: 88 Year
  Sex: Male

DRUGS (2)
  1. HYDREA [Suspect]
     Indication: THROMBOCYTOPENIA
     Dosage: START DATE:  UNSPECIFIED
     Route: 048
     Dates: start: 20030910, end: 20030910
  2. OMEPRAZOLE [Concomitant]
     Dates: end: 20030927

REACTIONS (3)
  - AGRANULOCYTOSIS [None]
  - ESCHERICHIA SEPSIS [None]
  - MULTI-ORGAN FAILURE [None]
